FAERS Safety Report 9813325 (Version 1)
Quarter: 2014Q1

REPORT INFORMATION
  Report Type: Report from Study
  Country: DK (occurrence: DK)
  Receive Date: 20140113
  Receipt Date: 20140113
  Transmission Date: 20141002
  Serious: Yes (Death)
  Sender: FDA-Public Use
  Company Number: DK-JNJFOC-20140103787

PATIENT
  Sex: 0

DRUGS (6)
  1. TRAMADOL HYDROCHLORIDE [Suspect]
     Indication: PAIN
     Route: 065
  2. DICLOFENAC [Suspect]
     Indication: PAIN
     Route: 065
  3. MORPHINE [Suspect]
     Indication: PAIN
     Route: 065
  4. IBUPROFEN [Suspect]
     Indication: PAIN
     Route: 065
  5. NAPROXEN [Suspect]
     Indication: PAIN
     Route: 065
  6. PARACETAMOL [Suspect]
     Indication: PAIN
     Route: 065

REACTIONS (1)
  - Death [Fatal]
